FAERS Safety Report 4588299-2 (Version None)
Quarter: 2005Q1

REPORT INFORMATION
  Report Type: 
  Country: None (occurrence: None)
  Receive Date: 20050216
  Receipt Date: 20050204
  Transmission Date: 20050727
  Serious: No
  Sender: FDA-Public Use
  Company Number: 2005AP00834

PATIENT
  Age: 57 Year
  Sex: Male
  Weight: 160 kg

DRUGS (14)
  1. ATACAND [Suspect]
     Indication: ESSENTIAL HYPERTENSION
     Dosage: 1 DF DAILY PO
     Route: 048
     Dates: end: 20030829
  2. WARFARIN SODIUM [Suspect]
     Indication: TRANSIENT ISCHAEMIC ATTACK
     Dosage: 1 DF DAILY PO
     Route: 048
  3. KEFLEX [Concomitant]
  4. COLCHICINE [Concomitant]
  5. FELODIPINE [Concomitant]
  6. GEMFIBROZIL [Concomitant]
  7. ESOMEPRAZOLE [Concomitant]
  8. ALLOPURINOL [Concomitant]
  9. NICOTINE ACID [Concomitant]
  10. CARBAMAZEPIN ^GRY^ [Concomitant]
  11. BUMETANIDE [Concomitant]
  12. BETOPTIC [Concomitant]
  13. TRYPTANOL [Concomitant]
  14. SANDOMIGRAN [Concomitant]

REACTIONS (3)
  - DRUG INTERACTION [None]
  - GASTROINTESTINAL HAEMORRHAGE [None]
  - INTERNATIONAL NORMALISED RATIO INCREASED [None]
